FAERS Safety Report 4339010-1 (Version None)
Quarter: 2004Q2

REPORT INFORMATION
  Report Type: 
  Country: None (occurrence: None)
  Receive Date: 20040409
  Receipt Date: 20040331
  Transmission Date: 20050107
  Serious: Yes (Hospitalization)
  Sender: FDA-Public Use
  Company Number: 2004207364JP

PATIENT
  Age: 59 Year
  Sex: Male

DRUGS (1)
  1. MINOXIDIL [Suspect]
     Indication: MALE PATTERN BALDNESS
     Dosage: 1 ML, BID, TOPICAL
     Route: 061
     Dates: start: 19990601, end: 20040310

REACTIONS (2)
  - CERVICAL SPINAL STENOSIS [None]
  - HYPOAESTHESIA [None]
